FAERS Safety Report 12551410 (Version 1)
Quarter: 2016Q3

REPORT INFORMATION
  Report Type: Spontaneous
  Country: US (occurrence: US)
  Receive Date: 20160713
  Receipt Date: 20160713
  Transmission Date: 20161109
  Serious: No
  Sender: FDA-Public Use
  Company Number: US-TEVA-658933USA

PATIENT
  Age: 57 Year
  Sex: Female

DRUGS (3)
  1. CELEXA [Suspect]
     Active Substance: CITALOPRAM HYDROBROMIDE
     Route: 065
  2. SEROQUEL [Interacting]
     Active Substance: QUETIAPINE FUMARATE
     Route: 065
  3. ZECUITY [Suspect]
     Active Substance: SUMATRIPTAN SUCCINATE
     Indication: MIGRAINE
     Route: 062
     Dates: start: 20160508, end: 20160508

REACTIONS (8)
  - Vision blurred [Recovered/Resolved]
  - Nausea [Recovered/Resolved]
  - Dysarthria [Recovered/Resolved]
  - Product leakage [Unknown]
  - Drug interaction [Recovered/Resolved]
  - Application site erythema [Unknown]
  - Application site pruritus [Unknown]
  - Dizziness [Recovered/Resolved]

NARRATIVE: CASE EVENT DATE: 20160508
